FAERS Safety Report 6450071-6 (Version None)
Quarter: 2009Q4

REPORT INFORMATION
  Report Type: 
  Country: None (occurrence: None)
  Receive Date: 20091120
  Receipt Date: 20091120
  Transmission Date: 20100525
  Serious: Yes (Hospitalization)
  Sender: FDA-Public Use
  Company Number: None

PATIENT
  Age: 1 Day
  Sex: Female
  Weight: 3.57 kg

DRUGS (2)
  1. GENTAK [Suspect]
     Indication: CHLAMYDIAL INFECTION
     Dosage: 3.5 GRAM ONCE AT BIRTH OPTHALMIC
     Route: 047
     Dates: start: 20090701, end: 20091119
  2. GENTAK [Suspect]
     Indication: EYE INFECTION GONOCOCCAL
     Dosage: 3.5 GRAM ONCE AT BIRTH OPTHALMIC
     Route: 047
     Dates: start: 20090701, end: 20091119

REACTIONS (2)
  - DRUG HYPERSENSITIVITY [None]
  - EYE DISCHARGE [None]
